FAERS Safety Report 6170212-8 (Version None)
Quarter: 2009Q2

REPORT INFORMATION
  Report Type: 
  Country: None (occurrence: None)
  Receive Date: 20090428
  Receipt Date: 20090413
  Transmission Date: 20091009
  Serious: Yes (Other)
  Sender: FDA-Public Use
  Company Number: PHHY2009BR14154

PATIENT
  Age: 80 Year
  Sex: Female

DRUGS (8)
  1. EXELON [Suspect]
     Indication: DEMENTIA ALZHEIMER'S TYPE
     Dosage: 9MG/5CM2
  2. METFORMIN HCL [Concomitant]
     Dosage: 3 TABLETS AFTER LUNCH
  3. PROPRANOLOL [Concomitant]
  4. ENALAPRIL [Concomitant]
  5. AAS [Concomitant]
  6. BENERVA [Concomitant]
  7. PLAVIX [Concomitant]
  8. CLONIXIN LYSINATE [Concomitant]

REACTIONS (7)
  - AGITATION [None]
  - ANXIETY [None]
  - APPLICATION SITE HYPERSENSITIVITY [None]
  - BALANCE DISORDER [None]
  - GAIT DISTURBANCE [None]
  - MALAISE [None]
  - TREMOR [None]
